FAERS Safety Report 12485877 (Version 1)
Quarter: 2016Q2

REPORT INFORMATION
  Report Type: Report from Study
  Country: US (occurrence: US)
  Receive Date: 20160621
  Receipt Date: 20160621
  Transmission Date: 20160815
  Serious: Yes (Other)
  Sender: FDA-Public Use
  Company Number: US-009507513-1606USA003863

PATIENT
  Sex: Male

DRUGS (1)
  1. JANUMET [Suspect]
     Active Substance: METFORMIN HYDROCHLORIDE\SITAGLIPTIN PHOSPHATE

REACTIONS (6)
  - Neoplasm [Unknown]
  - Visual impairment [Unknown]
  - Impaired insulin secretion [Unknown]
  - Blood glucose increased [Unknown]
  - Lower respiratory tract infection [Unknown]
  - Weight decreased [Unknown]
